FAERS Safety Report 4450745-2 (Version None)
Quarter: 2004Q3

REPORT INFORMATION
  Report Type: 
  Country: None (occurrence: None)
  Receive Date: 20040913
  Receipt Date: 20040913
  Transmission Date: 20050211
  Serious: Yes (Death)
  Sender: FDA-Public Use
  Company Number: None

PATIENT
  Age: 22 Year
  Sex: Female
  Weight: 63.5036 kg

DRUGS (1)
  1. KETOCONAZOLE [Suspect]
     Indication: INFECTION
     Dates: start: 20020801

REACTIONS (4)
  - CARDIAC ARREST [None]
  - DIZZINESS [None]
  - LONG QT SYNDROME [None]
  - MALAISE [None]
